FAERS Safety Report 19304377 (Version 3)
Quarter: 2021Q3

REPORT INFORMATION
  Report Type: Report from Study
  Country: CO (occurrence: CO)
  Receive Date: 20210526
  Receipt Date: 20210804
  Transmission Date: 20211014
  Serious: Yes (Death, Other)
  Sender: FDA-Public Use
  Company Number: CO-AUROBINDO-AUR-APL-2020-055972

PATIENT
  Age: 62 Year
  Sex: Male

DRUGS (2)
  1. FOLOTYN [Suspect]
     Active Substance: PRALATREXATE
     Indication: CUTANEOUS T-CELL LYMPHOMA
     Dosage: 25 MILLIGRAM, DAILY
     Route: 042
     Dates: start: 20200914
  2. FOLOTYN [Suspect]
     Active Substance: PRALATREXATE
     Indication: PERIPHERAL T-CELL LYMPHOMA UNSPECIFIED

REACTIONS (7)
  - Abdominal pain upper [Unknown]
  - Myocardial infarction [Unknown]
  - Inflammation [Recovering/Resolving]
  - Malignant neoplasm progression [Fatal]
  - Muscular weakness [Unknown]
  - Mass [Unknown]
  - Mucosal inflammation [Not Recovered/Not Resolved]

NARRATIVE: CASE EVENT DATE: 20201008
